FAERS Safety Report 5800916-5 (Version None)
Quarter: 2008Q3

REPORT INFORMATION
  Report Type: 
  Country: None (occurrence: None)
  Receive Date: 20080701
  Receipt Date: 20080627
  Transmission Date: 20090109
  Serious: Yes (Other)
  Sender: FDA-Public Use
  Company Number: 2008SP012811

PATIENT
  Sex: Male

DRUGS (4)
  1. NASONEX [Suspect]
     Indication: RHINORRHOEA
     Dosage: 1 DF;BID;NAS
     Route: 045
     Dates: start: 20080601, end: 20080601
  2. NASONEX [Suspect]
     Indication: SNEEZING
     Dosage: 1 DF;BID;NAS
     Route: 045
     Dates: start: 20080601, end: 20080601
  3. RAMIPRIL [Concomitant]
  4. NATRILIX-SR [Concomitant]

REACTIONS (1)
  - BLOOD PRESSURE SYSTOLIC INCREASED [None]
